FAERS Safety Report 6603946-9 (Version None)
Quarter: 2010Q1

REPORT INFORMATION
  Report Type: 
  Country: None (occurrence: None)
  Receive Date: 20100226
  Receipt Date: 20090324
  Transmission Date: 20100710
  Serious: No
  Sender: FDA-Public Use
  Company Number: A0775078A

PATIENT
  Age: 3 Year
  Sex: Male

DRUGS (3)
  1. LAMICTAL CD [Suspect]
     Indication: PARTIAL SEIZURES
     Dosage: 50MG TWICE PER DAY
     Route: 048
     Dates: start: 20090109, end: 20090320
  2. UNKNOWN MEDICATION [Concomitant]
  3. M.V.I. [Concomitant]

REACTIONS (5)
  - DIARRHOEA [None]
  - EAR INFECTION [None]
  - ERYTHEMA [None]
  - PRURITUS [None]
  - RASH [None]
